FAERS Safety Report 12312015 (Version 3)
Quarter: 2020Q1

REPORT INFORMATION
  Report Type: Spontaneous
  Country: US (occurrence: US)
  Receive Date: 20160427
  Receipt Date: 20200128
  Transmission Date: 20200409
  Serious: Yes (Hospitalization, Other)
  Sender: FDA-Public Use
  Company Number: US-JAZZ-2013-US-004006

PATIENT
  Sex: Female

DRUGS (3)
  1. XYREM [Suspect]
     Active Substance: SODIUM OXYBATE
     Indication: CATAPLEXY
     Dosage: DOSE ADJUSTMENTS
     Route: 048
  2. XYREM [Suspect]
     Active Substance: SODIUM OXYBATE
     Indication: NARCOLEPSY
     Dosage: 3 G, BID
     Route: 048
     Dates: start: 200707
  3. XYREM [Suspect]
     Active Substance: SODIUM OXYBATE
     Dosage: 5.25 G, BID
     Route: 048
     Dates: start: 201304, end: 202001

REACTIONS (7)
  - Panic attack [Unknown]
  - Depression [Unknown]
  - Drug hypersensitivity [Unknown]
  - Agoraphobia [Not Recovered/Not Resolved]
  - Anxiety disorder [Unknown]
  - Suicidal ideation [Unknown]
  - Obsessive-compulsive disorder [Not Recovered/Not Resolved]
